FAERS Safety Report 9714013 (Version 1)
Quarter: 2013Q4

REPORT INFORMATION
  Report Type: Spontaneous
  Country: US (occurrence: US)
  Receive Date: 20131126
  Receipt Date: 20131126
  Transmission Date: 20140711
  Serious: No
  Sender: FDA-Public Use
  Company Number: US-GILEAD-2008-0018521

PATIENT
  Sex: Female

DRUGS (8)
  1. LETAIRIS [Suspect]
     Indication: PULMONARY HYPERTENSION
     Route: 048
     Dates: start: 20071016
  2. REVATIO [Concomitant]
  3. LASIX [Concomitant]
  4. PROTONIX [Concomitant]
  5. EVOXAC [Concomitant]
  6. KCL [Concomitant]
  7. MVI [Concomitant]
  8. IRON [Concomitant]

REACTIONS (1)
  - Abdominal discomfort [Recovered/Resolved]
